FAERS Safety Report 7677202-4 (Version None)
Quarter: 2011Q3

REPORT INFORMATION
  Report Type: 
  Country: None (occurrence: None)
  Receive Date: 20110811
  Receipt Date: 20110726
  Transmission Date: 20111222
  Serious: No
  Sender: FDA-Public Use
  Company Number: US-B.I. PHARMACEUTICALS,INC./RIDGEFIELD-2011-BP-16371BP

PATIENT
  Sex: Male
  Weight: 76.2 kg

DRUGS (22)
  1. METFORMIN HCL [Concomitant]
     Dosage: 1000 MG
  2. XERESE [Concomitant]
     Indication: ORAL HERPES
  3. ACIPHEX [Concomitant]
  4. PLAVIX [Concomitant]
  5. AMIODARONE HCL [Concomitant]
  6. CENTRUM [Concomitant]
  7. BUMETANIDE [Concomitant]
     Indication: DIURETIC THERAPY
  8. PRADAXA [Suspect]
     Indication: ANTICOAGULANT THERAPY
     Dosage: 300 MG
     Route: 048
     Dates: start: 20110601, end: 20110623
  9. GLUCOSAMINE + CHONDROITIN [Concomitant]
  10. PROPOXYPHENE NAPSYLATE [Concomitant]
     Indication: PAIN
  11. CITALOPRAM [Concomitant]
     Indication: ANTIDEPRESSANT THERAPY
     Route: 048
     Dates: start: 20110101
  12. VALTREX [Concomitant]
     Indication: ORAL HERPES
  13. KLOR-CON [Concomitant]
     Indication: DIURETIC THERAPY
  14. FINACEA [Concomitant]
     Indication: ROSACEA
  15. ZYRTEC [Concomitant]
  16. ASCORBIC ACID [Concomitant]
     Dosage: 2000 MG
  17. XANAX [Concomitant]
  18. LEVOTHYROXINE SODIUM [Concomitant]
     Dosage: 0.5 MG
  19. LIPITOR [Concomitant]
  20. FLUTICASON PROPIONATE [Concomitant]
     Route: 045
  21. DOXYCYCLINE [Concomitant]
     Indication: ROSACEA
  22. AMOXICILLIN [Concomitant]
     Indication: DENTAL DISORDER PROPHYLAXIS

REACTIONS (2)
  - AORTIC VALVE INCOMPETENCE [None]
  - EXERCISE TOLERANCE DECREASED [None]
